FAERS Safety Report 20760179 (Version 1)
Quarter: 2022Q2

REPORT INFORMATION
  Report Type: Spontaneous
  Country: US (occurrence: US)
  Receive Date: 20220428
  Receipt Date: 20220428
  Transmission Date: 20220721
  Serious: No
  Sender: FDA-Public Use
  Company Number: US-ENDO PHARMACEUTICALS INC-2022-001851

PATIENT
  Age: 35 Year
  Sex: Female

DRUGS (1)
  1. QWO [Suspect]
     Active Substance: COLLAGENASE CLOSTRIDIUM HISTOLYTICUM-AAES
     Indication: Product used for unknown indication
     Dosage: UNK, UNKNOWN (TREATMENT ONE, 12 INJECTIONS)
     Route: 065
     Dates: start: 20210913

REACTIONS (2)
  - Injection site atrophy [Not Recovered/Not Resolved]
  - Contusion [Not Recovered/Not Resolved]
